FAERS Safety Report 20484875 (Version 1)
Quarter: 2022Q1

REPORT INFORMATION
  Report Type: Spontaneous
  Country: CA (occurrence: CA)
  Receive Date: 20220217
  Receipt Date: 20220217
  Transmission Date: 20220423
  Serious: Yes (Death)
  Sender: FDA-Public Use
  Company Number: CA-BAXTER-2022BAX002989

PATIENT

DRUGS (29)
  1. IFEX [Suspect]
     Active Substance: IFOSFAMIDE
     Indication: B-cell lymphoma
     Route: 042
  2. IFEX [Suspect]
     Active Substance: IFOSFAMIDE
     Indication: Follicle centre lymphoma, follicular grade I, II, III
     Route: 042
  3. IFEX [Suspect]
     Active Substance: IFOSFAMIDE
     Route: 065
  4. CYCLOPHOSPHAMIDE [Suspect]
     Active Substance: CYCLOPHOSPHAMIDE
     Indication: Follicle centre lymphoma, follicular grade I, II, III
     Route: 065
  5. CYCLOPHOSPHAMIDE [Suspect]
     Active Substance: CYCLOPHOSPHAMIDE
     Indication: B-cell lymphoma
  6. BUSULFEX [Suspect]
     Active Substance: BUSULFAN
     Indication: Follicle centre lymphoma, follicular grade I, II, III
     Route: 042
  7. BUSULFEX [Suspect]
     Active Substance: BUSULFAN
     Indication: B-cell lymphoma
  8. CARBOPLATIN [Suspect]
     Active Substance: CARBOPLATIN
     Indication: Follicle centre lymphoma, follicular grade I, II, III
     Route: 065
  9. CARBOPLATIN [Suspect]
     Active Substance: CARBOPLATIN
     Indication: B-cell lymphoma
  10. CISPLATIN [Suspect]
     Active Substance: CISPLATIN
     Indication: Follicle centre lymphoma, follicular grade I, II, III
     Route: 065
  11. CISPLATIN [Suspect]
     Active Substance: CISPLATIN
     Indication: B-cell lymphoma
  12. DOXORUBICIN HYDROCHLORIDE [Suspect]
     Active Substance: DOXORUBICIN HYDROCHLORIDE
     Indication: Follicle centre lymphoma, follicular grade I, II, III
     Route: 065
  13. DOXORUBICIN HYDROCHLORIDE [Suspect]
     Active Substance: DOXORUBICIN HYDROCHLORIDE
     Indication: B-cell lymphoma
  14. ETOPOSIDE [Suspect]
     Active Substance: ETOPOSIDE
     Indication: Follicle centre lymphoma, follicular grade I, II, III
     Route: 065
  15. ETOPOSIDE [Suspect]
     Active Substance: ETOPOSIDE
     Indication: B-cell lymphoma
  16. FILGRASTIM [Suspect]
     Active Substance: FILGRASTIM
     Indication: B-cell lymphoma
     Route: 042
  17. FLUDARABINE PHOSPHATE [Suspect]
     Active Substance: FLUDARABINE PHOSPHATE
     Indication: Follicle centre lymphoma, follicular grade I, II, III
     Route: 065
  18. FLUDARABINE PHOSPHATE [Suspect]
     Active Substance: FLUDARABINE PHOSPHATE
     Indication: B-cell lymphoma
  19. GRANULOCYTE COLONY-STIMULATING FACTOR NOS [Suspect]
     Active Substance: GRANULOCYTE COLONY-STIMULATING FACTOR NOS
     Indication: Follicle centre lymphoma, follicular grade I, II, III
     Dosage: DOSAGE FORM: NOT SPECIFIED
     Route: 065
  20. GRANULOCYTE COLONY-STIMULATING FACTOR NOS [Suspect]
     Active Substance: GRANULOCYTE COLONY-STIMULATING FACTOR NOS
     Indication: B-cell lymphoma
  21. PREDNISONE [Suspect]
     Active Substance: PREDNISONE
     Indication: Follicle centre lymphoma, follicular grade I, II, III
     Dosage: DOSAGE FORM: NOT SPECIFIED
     Route: 065
  22. PREDNISONE [Suspect]
     Active Substance: PREDNISONE
     Indication: B-cell lymphoma
  23. RITUXAN [Suspect]
     Active Substance: RITUXIMAB
     Indication: Follicle centre lymphoma, follicular grade I, II, III
     Route: 042
  24. RITUXAN [Suspect]
     Active Substance: RITUXIMAB
     Indication: B-cell lymphoma
  25. VINCRISTINE SULFATE [Suspect]
     Active Substance: VINCRISTINE SULFATE
     Indication: Follicle centre lymphoma, follicular grade I, II, III
     Dosage: DOSAGE FORM: NOT SPECIFIED
     Route: 065
  26. VINCRISTINE SULFATE [Suspect]
     Active Substance: VINCRISTINE SULFATE
     Indication: B-cell lymphoma
  27. ZEVALIN [Suspect]
     Active Substance: IBRITUMOMAB TIUXETAN
     Indication: Follicle centre lymphoma, follicular grade I, II, III
     Dosage: DOSAGE FORM: NOT SPECIFIED
     Route: 042
  28. ZEVALIN [Suspect]
     Active Substance: IBRITUMOMAB TIUXETAN
     Indication: B-cell lymphoma
  29. ZEVALIN [Concomitant]
     Active Substance: IBRITUMOMAB TIUXETAN
     Indication: Product used for unknown indication
     Dosage: DOSAGE FORM: NOT SPECIFIED
     Route: 065

REACTIONS (3)
  - Meningitis tuberculous [Fatal]
  - Progressive multifocal leukoencephalopathy [Fatal]
  - Sepsis [Fatal]
